FAERS Safety Report 5703142-3 (Version None)
Quarter: 2008Q2

REPORT INFORMATION
  Report Type: 
  Country: None (occurrence: None)
  Receive Date: 20080411
  Receipt Date: 20080404
  Transmission Date: 20081010
  Serious: Yes (Other)
  Sender: FDA-Public Use
  Company Number: IT-PFIZER INC-2007107613

PATIENT
  Sex: Female

DRUGS (1)
  1. UNIQUIN [Suspect]
     Indication: CYSTITIS
     Dosage: DAILY DOSE:400MG
     Route: 048
     Dates: start: 20070728, end: 20070802

REACTIONS (3)
  - DERMATITIS EXFOLIATIVE [None]
  - PHOTOSENSITIVITY REACTION [None]
  - PYREXIA [None]
